FAERS Safety Report 6335799-0 (Version None)
Quarter: 2009Q3

REPORT INFORMATION
  Report Type: 
  Country: None (occurrence: None)
  Receive Date: 20090828
  Receipt Date: 20090818
  Transmission Date: 20100115
  Serious: Yes (Other)
  Sender: FDA-Public Use
  Company Number: ADR13482009

PATIENT
  Age: 72 Year
  Sex: Female

DRUGS (4)
  1. CITALOPRAM HYDROBROMIDE [Suspect]
     Indication: OBSESSIVE-COMPULSIVE DISORDER
     Dosage: 20MG ORAL
     Route: 048
     Dates: start: 20070810, end: 20070810
  2. CO-DYDRAMOL [Concomitant]
  3. FELODIPINE [Concomitant]
  4. OXYBUTYNIN [Concomitant]

REACTIONS (3)
  - HYPOTENSION [None]
  - LOSS OF CONSCIOUSNESS [None]
  - SYNCOPE [None]
